FAERS Safety Report 11932175 (Version 2)
Quarter: 2016Q2

REPORT INFORMATION
  Report Type: Report from Study
  Country: ES (occurrence: ES)
  Receive Date: 20160120
  Receipt Date: 20160406
  Transmission Date: 20160815
  Serious: Yes (Disabling)
  Sender: FDA-Public Use
  Company Number: ES-ABBVIE-16P-144-1540066-00

PATIENT
  Age: 74 Year
  Sex: Female

DRUGS (2)
  1. OXYGEN. [Concomitant]
     Active Substance: OXYGEN
     Indication: PRODUCT USED FOR UNKNOWN INDICATION
  2. DUODOPA [Suspect]
     Active Substance: CARBIDOPA\LEVODOPA
     Indication: PARKINSON^S DISEASE
     Route: 050

REACTIONS (5)
  - Device dislocation [Unknown]
  - Influenza [Recovered/Resolved]
  - Dermatitis [Recovered/Resolved]
  - Hypotonia [Unknown]
  - Abasia [Unknown]

NARRATIVE: CASE EVENT DATE: 201601
